FAERS Safety Report 5654178-2 (Version None)
Quarter: 2008Q1

REPORT INFORMATION
  Report Type: 
  Country: None (occurrence: None)
  Receive Date: 20080303
  Receipt Date: 20080221
  Transmission Date: 20080703
  Serious: Yes (Hospitalization)
  Sender: FDA-Public Use
  Company Number: AEUSA200700271

PATIENT
  Age: 60 Year
  Sex: Female
  Weight: 90.7194 kg

DRUGS (22)
  1. GAMUNEX [Suspect]
     Indication: IMMUNODEFICIENCY COMMON VARIABLE
     Dosage: 20 GM; 1X; IV
     Route: 042
     Dates: start: 19970101
  2. ADVAIR DISKUS 100/50 [Concomitant]
  3. ALLEGRA [Concomitant]
  4. THEOPHYLLINE [Concomitant]
  5. SINGULAIR [Concomitant]
  6. ACTONEL [Concomitant]
  7. ELMIRON [Concomitant]
  8. EVISTA [Concomitant]
  9. FOLIC ACID [Concomitant]
  10. INDOMETHACIN /00003801/ [Concomitant]
  11. METHOTREXATE [Concomitant]
  12. PREVACID [Concomitant]
  13. FLUTICASONE [Concomitant]
  14. AMITRIPTYLINE HCL [Concomitant]
  15. LYRICA [Concomitant]
  16. AZULFIDINE EN-TABS [Concomitant]
  17. COLESTID [Concomitant]
  18. LISINOPRIL [Concomitant]
  19. VERAPAMIL [Concomitant]
  20. LEVOXYL [Concomitant]
  21. POTASSIUM CHLORIDE [Concomitant]
  22. LEVIB [Concomitant]

REACTIONS (10)
  - BACTERIAL INFECTION [None]
  - BLOOD CULTURE POSITIVE [None]
  - CARDIAC FAILURE [None]
  - INTRASPINAL ABSCESS [None]
  - PULMONARY CONGESTION [None]
  - PULMONARY EMBOLISM [None]
  - ROTATOR CUFF REPAIR [None]
  - SERRATIA INFECTION [None]
  - THROMBOSIS [None]
  - THYROID NEOPLASM [None]
